FAERS Safety Report 9202364 (Version 1)
Quarter: 2013Q2

REPORT INFORMATION
  Report Type: Spontaneous
  Country: US (occurrence: US)
  Receive Date: 20130401
  Receipt Date: 20130401
  Transmission Date: 20140414
  Serious: Yes (Other)
  Sender: FDA-Public Use
  Company Number: US-PURDUE-USA-2013-0098927

PATIENT
  Age: 65 Year
  Sex: Female

DRUGS (1)
  1. OXYCONTIN (NDA 22-272) [Suspect]
     Indication: PAIN
     Dosage: 20 MG, AS NEEDED EVERY 8 HOURS
     Dates: start: 20121113, end: 20121213

REACTIONS (6)
  - Tooth fracture [Unknown]
  - Device failure [Recovered/Resolved]
  - Dental plaque [Unknown]
  - Gingival bleeding [Unknown]
  - Drug ineffective [Unknown]
  - Dry mouth [Unknown]
